FAERS Safety Report 20212127 (Version 1)
Quarter: 2021Q4

REPORT INFORMATION
  Report Type: Report from Study
  Country: EE (occurrence: EE)
  Receive Date: 20211221
  Receipt Date: 20211221
  Transmission Date: 20220303
  Serious: Yes (Hospitalization)
  Sender: FDA-Public Use
  Company Number: EE-CELGENE-EST-20211204892

PATIENT
  Sex: Female

DRUGS (5)
  1. OZANIMOD [Suspect]
     Active Substance: OZANIMOD
     Indication: Relapsing multiple sclerosis
     Route: 048
     Dates: start: 20161025
  2. CLIMOFEMIN [Concomitant]
     Indication: Menopause
     Dosage: 6.5 MILLIGRAM
     Route: 048
     Dates: start: 20180605
  3. ESSENTIALE [Concomitant]
     Indication: Prophylaxis
     Dosage: 600 MILLIGRAM
     Route: 048
     Dates: start: 20170414
  4. FOSFOMYCIN [Concomitant]
     Active Substance: FOSFOMYCIN
     Indication: Cystitis
     Dosage: 3 GRAM
     Route: 048
     Dates: start: 20170414, end: 20170416
  5. VAGIFEM [Concomitant]
     Active Substance: ESTRADIOL
     Indication: Vaginal infection
     Dosage: 2.8571 MILLIGRAM
     Route: 050
     Dates: start: 20210302, end: 20210427

REACTIONS (1)
  - Urinary tract infection [Recovered/Resolved]

NARRATIVE: CASE EVENT DATE: 20210506
